FAERS Safety Report 9475145 (Version 3)
Quarter: 2013Q3

REPORT INFORMATION
  Report Type: Report from Study
  Country: CA (occurrence: CA)
  Receive Date: 20130824
  Receipt Date: 20130827
  Transmission Date: 20140515
  Serious: Yes (Hospitalization, Other)
  Sender: FDA-Public Use
  Company Number: CA-ROCHE-1195769

PATIENT
  Age: 57 Year
  Sex: Female

DRUGS (2)
  1. ZELBORAF [Suspect]
     Indication: METASTATIC MALIGNANT MELANOMA
     Route: 048
     Dates: start: 20130206
  2. ZELBORAF [Suspect]
     Route: 048
     Dates: start: 20130816

REACTIONS (9)
  - Disease progression [Unknown]
  - Oropharyngeal pain [Recovered/Resolved]
  - Arthralgia [Recovered/Resolved]
  - Rash [Recovered/Resolved]
  - Dehydration [Unknown]
  - Myalgia [Unknown]
  - Pain [Recovered/Resolved]
  - Tension headache [Recovered/Resolved]
  - Dysphagia [Unknown]
